FAERS Safety Report 12775603 (Version 1)
Quarter: 2016Q3

REPORT INFORMATION
  Report Type: Spontaneous
  Country: US (occurrence: US)
  Receive Date: 20160923
  Receipt Date: 20160923
  Transmission Date: 20161109
  Serious: No
  Sender: FDA-Public Use
  Company Number: None

PATIENT
  Age: 24 Year
  Sex: Female
  Weight: 59.88 kg

DRUGS (1)
  1. AMPHETAMINE - DEXTHROAMPHETAMINE ER 25 MG CAPSULE TEVA (NDC 00555079202) [Suspect]
     Active Substance: AMPHETAMINE ASPARTATE\AMPHETAMINE SULFATE\DEXTROAMPHETAMINE SACCHARATE\DEXTROAMPHETAMINE SULFATE
     Indication: ATTENTION DEFICIT/HYPERACTIVITY DISORDER
     Route: 048
     Dates: start: 20160901

REACTIONS (4)
  - Feeling jittery [None]
  - Vision blurred [None]
  - Feeling abnormal [None]
  - Tremor [None]

NARRATIVE: CASE EVENT DATE: 20160901
